FAERS Safety Report 10370065 (Version 1)
Quarter: 2014Q3

REPORT INFORMATION
  Report Type: Report from Study
  Country: CZ (occurrence: CZ)
  Receive Date: 20140808
  Receipt Date: 20140808
  Transmission Date: 20150326
  Serious: Yes (Hospitalization)
  Sender: FDA-Public Use
  Company Number: CZ-UCBSA-2014008107

PATIENT
  Age: 80 Year
  Sex: Female

DRUGS (12)
  1. CERTOLIZUMAB PEGOL [Suspect]
     Active Substance: CERTOLIZUMAB PEGOL
     Dosage: 200 MG, 2X/MONTH
     Dates: start: 20050427
  2. CALTRATE [Concomitant]
     Active Substance: CALCIUM CARBONATE
  3. METHOTREXATE [Concomitant]
     Active Substance: METHOTREXATE
  4. MEDOCLAV [Concomitant]
  5. LACTULOSA [Concomitant]
  6. TELMISARTAN. [Concomitant]
     Active Substance: TELMISARTAN
     Dosage: UNK
  7. LANZOL [Concomitant]
  8. AKTIFERRIN [Concomitant]
     Active Substance: FERROUS SULFATE\SERINE
  9. WARFARIN [Concomitant]
     Active Substance: WARFARIN
  10. CONCOR [Concomitant]
     Active Substance: BISOPROLOL FUMARATE
  11. MEDROL COMP [Concomitant]
     Dosage: UNK
  12. FURON [Concomitant]

REACTIONS (1)
  - Erysipelas [Recovered/Resolved]

NARRATIVE: CASE EVENT DATE: 20140604
